FAERS Safety Report 7936556-1 (Version None)
Quarter: 2011Q4

REPORT INFORMATION
  Report Type: 
  Country: None (occurrence: None)
  Receive Date: 20111123
  Receipt Date: 20111114
  Transmission Date: 20120403
  Serious: Yes (Other)
  Sender: FDA-Public Use
  Company Number: BE-SANOFI-AVENTIS-2011SA074734

PATIENT
  Age: 87 Year
  Sex: Male

DRUGS (7)
  1. LEVOTHYROXINE SODIUM [Concomitant]
     Route: 065
  2. SIPRALEXA [Concomitant]
     Route: 065
  3. OMEPRAZOLE [Concomitant]
     Route: 065
  4. INSULIN [Concomitant]
     Route: 065
  5. SINTROM [Concomitant]
     Route: 065
  6. LASIX [Concomitant]
     Route: 065
  7. DRONEDARONE HCL [Suspect]
     Indication: ATRIAL FIBRILLATION
     Route: 048
     Dates: start: 20110115

REACTIONS (2)
  - DYSPNOEA [None]
  - HYPOTENSION [None]
